FAERS Safety Report 13158492 (Version 1)
Quarter: 2017Q1

REPORT INFORMATION
  Report Type: Spontaneous
  Country: US (occurrence: US)
  Receive Date: 20170127
  Receipt Date: 20170127
  Transmission Date: 20170428
  Serious: Yes (Other)
  Sender: FDA-Public Use
  Company Number: US-AMGEN-USASP2017011943

PATIENT
  Sex: Female

DRUGS (5)
  1. NPLATE [Suspect]
     Active Substance: ROMIPLOSTIM
     Dosage: 4 MUG/KG, Q2WK
     Route: 065
  2. NPLATE [Suspect]
     Active Substance: ROMIPLOSTIM
     Dosage: 5 MUG/KG, Q2WK
     Route: 065
  3. MELATONIN [Concomitant]
     Active Substance: MELATONIN
  4. NPLATE [Suspect]
     Active Substance: ROMIPLOSTIM
     Indication: IMMUNE THROMBOCYTOPENIC PURPURA
     Dosage: 1 MUG/KG, Q2WK
     Route: 065
     Dates: start: 2016
  5. AMBIEN [Concomitant]
     Active Substance: ZOLPIDEM TARTRATE

REACTIONS (2)
  - Platelet count abnormal [Not Recovered/Not Resolved]
  - Insomnia [Not Recovered/Not Resolved]
